FAERS Safety Report 9334168 (Version 1)
Quarter: 2013Q2

REPORT INFORMATION
  Report Type: Spontaneous
  Country: US (occurrence: US)
  Receive Date: 20130606
  Receipt Date: 20130606
  Transmission Date: 20140414
  Serious: No
  Sender: FDA-Public Use
  Company Number: US-TARO-2012P1028061

PATIENT
  Age: 89 Year
  Sex: Female

DRUGS (3)
  1. BETAMETHASONE DIPROPIONATE [Suspect]
     Indication: RASH
     Route: 061
     Dates: start: 201204, end: 201205
  2. UNSPECIFIED INGREDIENTS [Suspect]
     Indication: RASH
  3. UNSPECIFIED INGREDIENTS [Concomitant]

REACTIONS (3)
  - Drug ineffective [Not Recovered/Not Resolved]
  - Application site pain [Recovered/Resolved]
  - Allergy to chemicals [Not Recovered/Not Resolved]
